FAERS Safety Report 5840809-0 (Version None)
Quarter: 2008Q3

REPORT INFORMATION
  Report Type: 
  Country: None (occurrence: None)
  Receive Date: 20080811
  Receipt Date: 20080725
  Transmission Date: 20090109
  Serious: No
  Sender: FDA-Public Use
  Company Number: US-BOEHRINGER INGELHEIM GMBH, GERMANY-2008-BP-11698BP

PATIENT
  Sex: Male

DRUGS (8)
  1. FLOMAX [Suspect]
     Indication: BENIGN PROSTATIC HYPERPLASIA
     Route: 048
     Dates: start: 20080705
  2. AVODART [Suspect]
     Indication: BENIGN PROSTATIC HYPERPLASIA
     Dates: start: 20080705
  3. ASACOL [Concomitant]
     Indication: COLITIS
  4. PRILOSEC [Concomitant]
     Indication: GASTROOESOPHAGEAL REFLUX DISEASE
  5. ASPIRIN [Concomitant]
     Indication: CARDIOVASCULAR EVENT PROPHYLAXIS
  6. PYRIDIUM [Concomitant]
     Indication: DYSURIA
  7. SAW PALMETTO [Concomitant]
     Indication: DYSURIA
  8. FLORASTOR [Concomitant]
     Indication: DYSURIA

REACTIONS (2)
  - DIZZINESS [None]
  - EJACULATION FAILURE [None]
